FAERS Safety Report 7571838-7 (Version None)
Quarter: 2011Q2

REPORT INFORMATION
  Report Type: 
  Country: None (occurrence: None)
  Receive Date: 20110624
  Receipt Date: 20110616
  Transmission Date: 20111010
  Serious: Yes (Other)
  Sender: FDA-Public Use
  Company Number: JP-AMGEN-JPNCT2011032247

PATIENT
  Age: 75 Year
  Sex: Male
  Weight: 61 kg

DRUGS (18)
  1. PANITUMUMAB [Suspect]
     Indication: COLORECTAL CANCER
     Dosage: 6 MG/KG, Q2WK
     Route: 041
     Dates: start: 20100810, end: 20100810
  2. PANITUMUMAB [Suspect]
     Dosage: 5 MG/KG, Q2WK
     Route: 041
     Dates: start: 20100831, end: 20100928
  3. ZINC OXIDE [Concomitant]
     Route: 062
  4. POLARAMINE [Concomitant]
     Route: 048
  5. ANTEBATE [Concomitant]
     Route: 062
  6. PANITUMUMAB [Suspect]
     Dosage: 5 MG/KG, Q2WK
     Route: 041
     Dates: start: 20110208, end: 20110405
  7. PROPETO [Concomitant]
     Route: 062
  8. GOODMIN [Concomitant]
     Route: 048
  9. PANDEL [Concomitant]
     Route: 062
  10. HIRUDOID [Concomitant]
     Route: 062
  11. LOPEMIN [Concomitant]
     Route: 048
  12. AMARYL [Concomitant]
     Route: 048
  13. LAC B [Concomitant]
     Route: 048
  14. WARFARIN SODIUM [Concomitant]
     Route: 048
  15. OLOPATADINE HCL [Concomitant]
     Route: 048
  16. PANITUMUMAB [Suspect]
     Dosage: 5 MG/KG, Q2WK
     Route: 041
     Dates: start: 20101026, end: 20101109
  17. ACTOS [Concomitant]
     Route: 048
  18. PANITUMUMAB [Suspect]
     Dosage: 5 MG/KG, Q2WK
     Route: 041
     Dates: start: 20101221, end: 20101221

REACTIONS (4)
  - DRY SKIN [None]
  - DEEP VEIN THROMBOSIS [None]
  - DERMATITIS ACNEIFORM [None]
  - SKIN FISSURES [None]
